FAERS Safety Report 14316073 (Version 2)
Quarter: 2017Q4

REPORT INFORMATION
  Report Type: Spontaneous
  Country: PH (occurrence: PH)
  Receive Date: 20171222
  Receipt Date: 20171225
  Transmission Date: 20180321
  Serious: Yes (Other)
  Sender: FDA-Public Use
  Company Number: PH-ROCHE-2039596

PATIENT
  Age: 82 Year
  Sex: Male

DRUGS (4)
  1. MABTHERA [Suspect]
     Active Substance: RITUXIMAB
     Indication: EXTRANODAL MARGINAL ZONE B-CELL LYMPHOMA (MALT TYPE)
     Route: 042
     Dates: start: 201607
  2. VINCRISTINE [Concomitant]
     Active Substance: VINCRISTINE
     Indication: EXTRANODAL MARGINAL ZONE B-CELL LYMPHOMA (MALT TYPE)
     Route: 065
  3. PREDNISONE. [Concomitant]
     Active Substance: PREDNISONE
     Indication: EXTRANODAL MARGINAL ZONE B-CELL LYMPHOMA (MALT TYPE)
     Dosage: 100 MG X 5DAYS
     Route: 065
  4. CYCLOPHOSPHAMIDE. [Concomitant]
     Active Substance: CYCLOPHOSPHAMIDE
     Indication: EXTRANODAL MARGINAL ZONE B-CELL LYMPHOMA (MALT TYPE)
     Route: 065

REACTIONS (14)
  - Intentional product use issue [Unknown]
  - Arthralgia [Unknown]
  - Off label use [Unknown]
  - Waist circumference increased [Unknown]
  - Pyrexia [Unknown]
  - Crepitations [Unknown]
  - Bone marrow infiltration [Unknown]
  - Platelet count decreased [Unknown]
  - Dysuria [Unknown]
  - Cardiac murmur [Unknown]
  - Tonsillar exudate [Unknown]
  - Headache [Unknown]
  - Oedema [Unknown]
  - White blood cell count decreased [Unknown]
